FAERS Safety Report 5695733-3 (Version None)
Quarter: 2008Q2

REPORT INFORMATION
  Report Type: 
  Country: None (occurrence: None)
  Receive Date: 20080407
  Receipt Date: 20080407
  Transmission Date: 20081010
  Serious: Yes (Death)
  Sender: FDA-Public Use
  Company Number: None

PATIENT
  Age: 58 Year
  Sex: Female
  Weight: 94.8018 kg

DRUGS (1)
  1. HEPARIN [Suspect]
     Dosage: 36,000 UNITS 1 IV BOLUS
     Route: 040
     Dates: start: 20080221, end: 20080221

REACTIONS (5)
  - ANURIA [None]
  - AORTIC VALVE REPLACEMENT [None]
  - GENERAL PHYSICAL HEALTH DETERIORATION [None]
  - MULTI-ORGAN FAILURE [None]
  - PYREXIA [None]
